FAERS Safety Report 5118714-7 (Version None)
Quarter: 2006Q3

REPORT INFORMATION
  Report Type: 
  Country: None (occurrence: None)
  Receive Date: 20060801
  Receipt Date: 20060502
  Transmission Date: 20061208
  Serious: Yes (Other)
  Sender: FDA-Public Use
  Company Number: 446796

PATIENT
  Sex: Female

DRUGS (1)
  1. BONIVA [Suspect]
     Indication: DRUG USE FOR UNKNOWN INDICATION
     Dosage: 3 MG INTRAVENOUS
     Route: 042
     Dates: start: 20060501

REACTIONS (4)
  - BONE PAIN [None]
  - DRUG ADMINISTRATION ERROR [None]
  - HEADACHE [None]
  - INJECTION SITE REACTION [None]
